FAERS Safety Report 5293834-5 (Version None)
Quarter: 2007Q2

REPORT INFORMATION
  Report Type: 
  Country: None (occurrence: None)
  Receive Date: 20070405
  Receipt Date: 20070323
  Transmission Date: 20071010
  Serious: Yes (Hospitalization)
  Sender: FDA-Public Use
  Company Number: 2007AL001246

PATIENT
  Age: 30 Year
  Sex: Male

DRUGS (2)
  1. PHENYTOIN [Suspect]
     Indication: CONVULSION
     Dosage: 300 MG/ QD
  2. PHENYTOIN [Suspect]
     Indication: PROPHYLAXIS
     Dosage: 300 MG/ QD

REACTIONS (7)
  - CEREBELLAR ATAXIA [None]
  - DIPLOPIA [None]
  - DRUG TOXICITY [None]
  - MUSCLE RIGIDITY [None]
  - NYSTAGMUS [None]
  - PARKINSONISM [None]
  - TREMOR [None]
